FAERS Safety Report 10352308 (Version 1)
Quarter: 2014Q3

REPORT INFORMATION
  Report Type: Spontaneous
  Country: US (occurrence: US)
  Receive Date: 20140730
  Receipt Date: 20140730
  Transmission Date: 20150326
  Serious: No
  Sender: FDA-Public Use
  Company Number: US-ABBVIE-14P-163-1226728-00

PATIENT
  Sex: Female
  Weight: 64.47 kg

DRUGS (9)
  1. ARMOUR THYROID [Suspect]
     Active Substance: THYROID, PORCINE\THYROID, UNSPECIFIED
  2. LEVOTHYROXINE [Suspect]
     Active Substance: LEVOTHYROXINE
     Indication: THYROID DISORDER
  3. LEVOTHYROXINE [Suspect]
     Active Substance: LEVOTHYROXINE
  4. ARMOUR THYROID [Suspect]
     Active Substance: THYROID, PORCINE\THYROID, UNSPECIFIED
  5. LEVOTHYROXINE [Suspect]
     Active Substance: LEVOTHYROXINE
  6. SYNTHROID [Suspect]
     Active Substance: LEVOTHYROXINE SODIUM
  7. SYNTHROID [Suspect]
     Active Substance: LEVOTHYROXINE SODIUM
     Indication: THYROID DISORDER
  8. ARMOUR THYROID [Suspect]
     Active Substance: THYROID, PORCINE\THYROID, UNSPECIFIED
     Indication: THYROID DISORDER
  9. LEVOTHYROXINE [Suspect]
     Active Substance: LEVOTHYROXINE

REACTIONS (10)
  - Abdominal pain upper [Not Recovered/Not Resolved]
  - Blood thyroid stimulating hormone increased [Unknown]
  - Anxiety [Not Recovered/Not Resolved]
  - Headache [Not Recovered/Not Resolved]
  - Insomnia [Not Recovered/Not Resolved]
  - Middle insomnia [Not Recovered/Not Resolved]
  - Feeling jittery [Not Recovered/Not Resolved]
  - Myalgia [Not Recovered/Not Resolved]
  - Muscular weakness [Not Recovered/Not Resolved]
  - Adverse reaction [Unknown]
